FAERS Safety Report 5522166-2 (Version None)
Quarter: 2007Q4

REPORT INFORMATION
  Report Type: 
  Country: None (occurrence: None)
  Receive Date: 20071120
  Receipt Date: 20071112
  Transmission Date: 20080405
  Serious: Yes (Hospitalization)
  Sender: FDA-Public Use
  Company Number: US-GENENTECH-251184

PATIENT
  Sex: Female
  Weight: 73.3 kg

DRUGS (10)
  1. BEVACIZUMAB [Suspect]
     Indication: OVARIAN CANCER
     Dosage: 10 MG/KG, QOW
     Route: 042
     Dates: start: 20071009
  2. TOPOTECAN [Suspect]
     Indication: OVARIAN CANCER
     Dosage: 4 MG/M2, DAYS1,8,15
     Route: 042
     Dates: start: 20071009
  3. CHLORASEPTIC THROAT SPRAY [Concomitant]
     Indication: DRUG USE FOR UNKNOWN INDICATION
     Dosage: UNK, PRN
  4. HEPARIN [Concomitant]
     Indication: DRUG USE FOR UNKNOWN INDICATION
     Dosage: 5000 UNIT, Q8H
  5. HYDROMORPHONE HCL [Concomitant]
     Indication: DRUG USE FOR UNKNOWN INDICATION
     Dosage: 0.8 MG, PRN
     Route: 042
  6. HYDROMORPHONE HCL [Concomitant]
     Dosage: 1 MG, PRN
     Route: 048
  7. HYDROMORPHONE HCL [Concomitant]
     Dosage: 2 MG, PRN
     Route: 048
  8. LORAZEPAM [Concomitant]
     Indication: DRUG USE FOR UNKNOWN INDICATION
     Dosage: 2 MG, PRN
     Route: 042
  9. NICOTINE [Concomitant]
     Indication: DRUG USE FOR UNKNOWN INDICATION
     Dosage: 21 MG, QD
  10. PROMETHAZINE [Concomitant]
     Indication: DRUG USE FOR UNKNOWN INDICATION
     Dosage: 6.25 MG, PRN
     Route: 042

REACTIONS (1)
  - SMALL INTESTINAL OBSTRUCTION [None]
